FAERS Safety Report 25613656 (Version 1)
Quarter: 2025Q3

REPORT INFORMATION
  Report Type: Spontaneous
  Country: CA (occurrence: CA)
  Receive Date: 20250728
  Receipt Date: 20250728
  Transmission Date: 20251021
  Serious: Yes (Other)
  Sender: PFIZER
  Company Number: CA-PFIZER INC-202400309068

PATIENT
  Age: 63 Year
  Sex: Female

DRUGS (9)
  1. RUXIENCE [Suspect]
     Active Substance: RITUXIMAB-PVVR
     Indication: Granulomatosis with polyangiitis
     Route: 042
     Dates: start: 20230603, end: 20230603
  2. RUXIENCE [Suspect]
     Active Substance: RITUXIMAB-PVVR
     Route: 042
     Dates: start: 20231212, end: 20231212
  3. RUXIENCE [Suspect]
     Active Substance: RITUXIMAB-PVVR
     Route: 042
     Dates: start: 20240613, end: 20240613
  4. RUXIENCE [Suspect]
     Active Substance: RITUXIMAB-PVVR
     Route: 042
     Dates: start: 20241217
  5. ATORVASTATIN [Concomitant]
     Active Substance: ATORVASTATIN
  6. CANDESARTAN [Concomitant]
     Active Substance: CANDESARTAN
  7. CYCLOPHOSPHAMIDE [Concomitant]
     Active Substance: CYCLOPHOSPHAMIDE
  8. PREDNISONE [Concomitant]
     Active Substance: PREDNISONE
  9. SEPTRA [Concomitant]
     Active Substance: SULFAMETHOXAZOLE\TRIMETHOPRIM

REACTIONS (3)
  - End stage renal disease [Unknown]
  - COVID-19 [Recovered/Resolved]
  - Off label use [Unknown]

NARRATIVE: CASE EVENT DATE: 20230603
